FAERS Safety Report 20573370 (Version 5)
Quarter: 2023Q1

REPORT INFORMATION
  Report Type: Spontaneous
  Country: JP (occurrence: JP)
  Receive Date: 20220309
  Receipt Date: 20230121
  Transmission Date: 20230417
  Serious: Yes (Other)
  Sender: FDA-Public Use
  Company Number: JP-UNITED THERAPEUTICS-UNT-2021-020785

PATIENT
  Age: 5 Year
  Sex: Female
  Weight: 15 kg

DRUGS (29)
  1. UNITUXIN [Suspect]
     Active Substance: DINUTUXIMAB
     Indication: Neuroblastoma
     Dosage: 17.5 MG/M2, CYCLICAL (CYCLE 1)
     Route: 041
     Dates: start: 20211005, end: 20211008
  2. UNITUXIN [Suspect]
     Active Substance: DINUTUXIMAB
     Dosage: 17.5 MG/M2, CYCLICAL (CYCLE 2)
     Route: 041
     Dates: start: 20211108, end: 20211111
  3. UNITUXIN [Suspect]
     Active Substance: DINUTUXIMAB
     Dosage: 17.5 MG/M2, CYCLICAL (CYCLE 3)
     Route: 041
     Dates: start: 20211206, end: 20211209
  4. UNITUXIN [Suspect]
     Active Substance: DINUTUXIMAB
     Dosage: 17.5 MG/M2, CYCLICAL (CYCLE 4)
     Route: 041
     Dates: start: 20220111, end: 20220114
  5. UNITUXIN [Suspect]
     Active Substance: DINUTUXIMAB
     Dosage: UNK, CYCLICAL
     Route: 041
     Dates: start: 2022, end: 20220301
  6. FILGRASTIM [Suspect]
     Active Substance: FILGRASTIM
     Indication: Neuroblastoma
     Dosage: 5 ?G/KG
     Route: 058
     Dates: start: 20211002, end: 20211012
  7. FILGRASTIM [Suspect]
     Active Substance: FILGRASTIM
     Dosage: 2 ?G/KG
     Route: 058
     Dates: start: 20211015, end: 20211015
  8. FILGRASTIM [Suspect]
     Active Substance: FILGRASTIM
     Dosage: 5 ?G/KG
     Route: 058
     Dates: start: 20211203, end: 20211216
  9. FILGRASTIM [Suspect]
     Active Substance: FILGRASTIM
     Dosage: UNK
     Route: 058
  10. TECELEUKIN [Suspect]
     Active Substance: TECELEUKIN
     Indication: Neuroblastoma
     Dosage: 750,000 UNITS/M2
     Route: 041
     Dates: start: 20211101, end: 20211104
  11. TECELEUKIN [Suspect]
     Active Substance: TECELEUKIN
     Dosage: 1000,000 UNITS/M2
     Route: 041
     Dates: start: 20211108, end: 20211111
  12. TECELEUKIN [Suspect]
     Active Substance: TECELEUKIN
     Dosage: 750,000 UNITS/M2
     Route: 041
     Dates: start: 20220104, end: 20220107
  13. TECELEUKIN [Suspect]
     Active Substance: TECELEUKIN
     Dosage: 1000,000 UNITS/M2
     Route: 041
     Dates: start: 20220111, end: 20220114
  14. MORPHINE HYDROCHLORIDE [Concomitant]
     Active Substance: MORPHINE HYDROCHLORIDE
     Indication: Abdominal pain
     Dosage: UNK
     Route: 065
     Dates: start: 20211005, end: 20211008
  15. MORPHINE HYDROCHLORIDE [Concomitant]
     Active Substance: MORPHINE HYDROCHLORIDE
     Indication: Prophylaxis
     Dosage: UNK
     Route: 065
     Dates: start: 20211108, end: 20211111
  16. MORPHINE HYDROCHLORIDE [Concomitant]
     Active Substance: MORPHINE HYDROCHLORIDE
     Dosage: UNK
     Route: 065
     Dates: start: 20211206, end: 20211209
  17. MORPHINE HYDROCHLORIDE [Concomitant]
     Active Substance: MORPHINE HYDROCHLORIDE
     Dosage: UNK
     Route: 065
     Dates: start: 20220111, end: 20220114
  18. ACETAMINOPHEN [Concomitant]
     Active Substance: ACETAMINOPHEN
     Indication: Pyrexia
     Dosage: UNK
     Route: 065
     Dates: start: 20211005, end: 20211008
  19. ACETAMINOPHEN [Concomitant]
     Active Substance: ACETAMINOPHEN
     Indication: Prophylaxis
     Dosage: UNK
     Route: 065
     Dates: start: 20211101, end: 20211105
  20. ACETAMINOPHEN [Concomitant]
     Active Substance: ACETAMINOPHEN
     Dosage: UNK
     Route: 065
     Dates: start: 20211108, end: 20211112
  21. ACETAMINOPHEN [Concomitant]
     Active Substance: ACETAMINOPHEN
     Dosage: UNK
     Route: 065
     Dates: start: 20211206, end: 20211210
  22. ACETAMINOPHEN [Concomitant]
     Active Substance: ACETAMINOPHEN
     Dosage: UNK
     Route: 065
     Dates: start: 20220104, end: 20220108
  23. ACETAMINOPHEN [Concomitant]
     Active Substance: ACETAMINOPHEN
     Dosage: UNK
     Route: 065
     Dates: start: 20220111, end: 20220115
  24. HYDROXYZINE [Concomitant]
     Active Substance: HYDROXYZINE HYDROCHLORIDE
     Indication: Prophylaxis
     Dosage: UNK
     Route: 065
     Dates: start: 20211005, end: 20211008
  25. HYDROXYZINE [Concomitant]
     Active Substance: HYDROXYZINE HYDROCHLORIDE
     Dosage: UNK
     Route: 065
     Dates: start: 20211101, end: 20211105
  26. HYDROXYZINE [Concomitant]
     Active Substance: HYDROXYZINE HYDROCHLORIDE
     Dosage: UNK
     Route: 065
     Dates: start: 20211108, end: 20211112
  27. HYDROXYZINE [Concomitant]
     Active Substance: HYDROXYZINE HYDROCHLORIDE
     Dosage: UNK
     Route: 065
     Dates: start: 20211206, end: 20211209
  28. HYDROXYZINE [Concomitant]
     Active Substance: HYDROXYZINE HYDROCHLORIDE
     Dosage: UNK
     Route: 065
     Dates: start: 20220104, end: 20220105
  29. HYDROXYZINE [Concomitant]
     Active Substance: HYDROXYZINE HYDROCHLORIDE
     Dosage: UNK
     Route: 065
     Dates: start: 20220111, end: 20220115

REACTIONS (16)
  - Neuroblastoma recurrent [Unknown]
  - Abdominal pain [Recovered/Resolved]
  - Pyrexia [Recovered/Resolved]
  - Aspartate aminotransferase increased [Recovered/Resolved]
  - Alanine aminotransferase increased [Recovered/Resolved]
  - Pyrexia [Recovered/Resolved]
  - C-reactive protein increased [Not Recovered/Not Resolved]
  - Pyrexia [Recovered/Resolved]
  - Pyrexia [Recovered/Resolved]
  - Bacterial infection [Unknown]
  - Pyrexia [Recovered/Resolved]
  - C-reactive protein increased [Recovered/Resolved]
  - Anaemia [Recovered/Resolved]
  - C-reactive protein increased [Recovered/Resolved]
  - C-reactive protein increased [Recovered/Resolved]
  - Pyrexia [Recovered/Resolved]

NARRATIVE: CASE EVENT DATE: 20211005
